FAERS Safety Report 17297202 (Version 1)
Quarter: 2020Q1

REPORT INFORMATION
  Report Type: Report from Study
  Country: JP (occurrence: JP)
  Receive Date: 20200122
  Receipt Date: 20200122
  Transmission Date: 20200409
  Serious: Yes (Hospitalization)
  Sender: FDA-Public Use
  Company Number: JP-CELLTRION INC.-2017JP002301

PATIENT

DRUGS (11)
  1. INFLIXIMAB BS FOR I.V. INFUSION100 MG [NK] [Suspect]
     Active Substance: INFLIXIMAB
     Dosage: 500 MG/BODY/DAY
     Route: 041
     Dates: start: 20160502, end: 20160502
  2. IMURAN [Concomitant]
     Active Substance: AZATHIOPRINE
     Indication: CROHN^S DISEASE
     Dosage: 50 MG/DAY
     Dates: start: 20141016
  3. ZENTACORT [Concomitant]
     Active Substance: BUDESONIDE
     Indication: CROHN^S DISEASE
     Dosage: 9 MG/DAY
     Dates: start: 20170309
  4. INFLIXIMAB BS FOR I.V. INFUSION100 MG [NK] [Suspect]
     Active Substance: INFLIXIMAB
     Dosage: 500 MG/BODY/DAY
     Route: 041
     Dates: start: 20160825, end: 20160825
  5. INFLIXIMAB BS FOR I.V. INFUSION100 MG [NK] [Suspect]
     Active Substance: INFLIXIMAB
     Dosage: 500 MG/BODY/DAY
     Route: 041
     Dates: start: 20161020, end: 20161020
  6. INFLIXIMAB BS FOR I.V. INFUSION100 MG [NK] [Suspect]
     Active Substance: INFLIXIMAB
     Dosage: 500 MG/BODY/DAY
     Route: 041
     Dates: start: 20170206, end: 20170206
  7. INFLIXIMAB BS FOR I.V. INFUSION100 MG [NK] [Suspect]
     Active Substance: INFLIXIMAB
     Dosage: 500 MG/BODY/DAY
     Route: 041
     Dates: start: 20170403, end: 20170403
  8. PENTASA [Concomitant]
     Active Substance: MESALAMINE
     Indication: CROHN^S DISEASE
     Dosage: 3000 MG/DAY
     Dates: start: 20131228
  9. INFLIXIMAB BS FOR I.V. INFUSION100 MG [NK] [Suspect]
     Active Substance: INFLIXIMAB
     Indication: CROHN^S DISEASE
     Dosage: 500 MG/BODY/DAY
     Route: 041
     Dates: start: 20160310, end: 20160310
  10. INFLIXIMAB BS FOR I.V. INFUSION100 MG [NK] [Suspect]
     Active Substance: INFLIXIMAB
     Dosage: 500 MG/BODY/DAY
     Route: 041
     Dates: start: 20160630, end: 20160630
  11. INFLIXIMAB BS FOR I.V. INFUSION100 MG [NK] [Suspect]
     Active Substance: INFLIXIMAB
     Dosage: 500 MG/BODY/DAY
     Route: 041
     Dates: start: 20161215, end: 20161215

REACTIONS (6)
  - Ileus [Recovered/Resolved]
  - Product use issue [Unknown]
  - Condition aggravated [Unknown]
  - Cervical dysplasia [Recovered/Resolved]
  - Malnutrition [Not Recovered/Not Resolved]
  - Overdose [Unknown]

NARRATIVE: CASE EVENT DATE: 20160405
